FAERS Safety Report 19891487 (Version 1)
Quarter: 2021Q3

REPORT INFORMATION
  Report Type: Report from Study
  Country: US (occurrence: US)
  Receive Date: 20210927
  Receipt Date: 20210927
  Transmission Date: 20211014
  Serious: Yes (Other)
  Sender: FDA-Public Use
  Company Number: NVSC2021US216841

PATIENT
  Age: 52 Year

DRUGS (1)
  1. ENTRESTO [Suspect]
     Active Substance: SACUBITRIL\VALSARTAN
     Indication: CARDIAC FAILURE CONGESTIVE
     Dosage: UNK, BID (24/26 MG)
     Route: 048
     Dates: start: 20210805

REACTIONS (5)
  - Pneumonia [Unknown]
  - Cardiac failure [Unknown]
  - Product dose omission issue [Unknown]
  - Stress [Unknown]
  - Pericardial effusion [Unknown]

NARRATIVE: CASE EVENT DATE: 20210920
